FAERS Safety Report 7710678-2 (Version None)
Quarter: 2011Q3

REPORT INFORMATION
  Report Type: 
  Country: None (occurrence: None)
  Receive Date: 20110825
  Receipt Date: 20110823
  Transmission Date: 20111222
  Serious: No
  Sender: FDA-Public Use
  Company Number: US-PFIZER INC-2011195508

PATIENT
  Sex: Male
  Weight: 99.773 kg

DRUGS (7)
  1. HYDROCHLOROTHIAZIDE [Concomitant]
     Dosage: 25 MG, UNK
  2. ACETYLSALICYLIC ACID [Concomitant]
     Dosage: UNK, 1X/DAY
  3. CARDIZEM [Concomitant]
     Dosage: 360 MG, UNK
  4. AVAPRO [Concomitant]
     Dosage: 300 MG, UNK
  5. ZANTAC [Concomitant]
     Indication: ANTACID THERAPY
     Dosage: UNK
  6. ADVIL LIQUI-GELS [Suspect]
     Indication: ARTHRALGIA
     Dosage: 200 MG, 2X/DAY
     Route: 048
     Dates: start: 20110808, end: 20110819
  7. DOXAZOSIN [Concomitant]
     Indication: CEREBROVASCULAR ACCIDENT
     Dosage: 2 MG, UNK

REACTIONS (1)
  - DIARRHOEA [None]
